FAERS Safety Report 9559273 (Version 2)
Quarter: 2013Q3

REPORT INFORMATION
  Report Type: Report from Study
  Country: DE (occurrence: DE)
  Receive Date: 20130927
  Receipt Date: 20130927
  Transmission Date: 20140515
  Serious: Yes (Hospitalization)
  Sender: FDA-Public Use
  Company Number: DE-009507513-2011SP004010

PATIENT
  Age: 64 Year
  Sex: Male
  Weight: 78 kg

DRUGS (16)
  1. TEMOZOLOMIDE [Suspect]
     Indication: GLIOBLASTOMA
     Dosage: 120 MG/M2, UNK
     Dates: start: 20110804
  2. TEMOZOLOMIDE [Suspect]
     Dosage: 150 MG/M2, UNK
     Dates: start: 20110623, end: 20110720
  3. TEMOZOLOMIDE [Suspect]
     Dosage: 150 MG/M2, UNK
     Dates: start: 20110526, end: 20110622
  4. TEMOZOLOMIDE [Suspect]
     Dosage: 150 MG/M2, UNK
     Dates: start: 20110428, end: 20110525
  5. TEMOZOLOMIDE [Suspect]
     Dosage: 150 MG/M2, UNK
     Dates: start: 20110331, end: 20110427
  6. TEMOZOLOMIDE [Suspect]
     Dosage: 150 MG/M2, UNK
     Dates: start: 20110303, end: 20110330
  7. TEMOZOLOMIDE [Suspect]
     Dosage: 150 MG/M2, UNK
     Dates: start: 20110203, end: 20110302
  8. TEMOZOLOMIDE [Suspect]
     Dosage: 120 MG/M2, UNK
     Dates: start: 20101231, end: 20110127
  9. TEMOZOLOMIDE [Suspect]
     Dosage: 150 MG/M2, UNK
     Dates: start: 20101203, end: 20101230
  10. LORAZEPAM [Concomitant]
     Indication: ANXIETY
     Dosage: 1 MG, BID
     Route: 048
     Dates: start: 2009
  11. OXCARBAZEPINE [Concomitant]
     Indication: EPILEPSY
     Route: 048
     Dates: start: 2010
  12. AMIODARONE [Concomitant]
     Indication: PRODUCT USED FOR UNKNOWN INDICATION
     Dosage: 100 MG, QAM
     Route: 048
  13. RAMIPRIL [Concomitant]
     Indication: HYPERTENSION
     Dosage: 5 MG, BID
     Route: 048
  14. PANTOZOL [Concomitant]
     Indication: GASTRITIS PROPHYLAXIS
     Dosage: 40 MG, QPM
     Route: 048
  15. GODAMED [Concomitant]
     Indication: PRODUCT USED FOR UNKNOWN INDICATION
     Dosage: GODAMED 50 MG
     Route: 048
     Dates: end: 20110801
  16. SULFAMETHOXAZOLE (+) TRIMETHOPRIM [Concomitant]
     Indication: INFECTION PROPHYLAXIS
     Dosage: 960 MG, UNK
     Dates: start: 20110131

REACTIONS (4)
  - Condition aggravated [Recovered/Resolved]
  - Mental disorder [Recovered/Resolved]
  - Lacunar infarction [Recovered/Resolved]
  - Hemiparesis [Recovered/Resolved]
